FAERS Safety Report 7224886-0 (Version None)
Quarter: 2011Q1

REPORT INFORMATION
  Report Type: 
  Country: None (occurrence: None)
  Receive Date: 20110113
  Receipt Date: 20101220
  Transmission Date: 20110831
  Serious: Yes (Hospitalization, Other)
  Sender: FDA-Public Use
  Company Number: US-BAYER-201031572NA

PATIENT
  Sex: Female
  Weight: 82 kg

DRUGS (18)
  1. NITROFURANTOIN [Concomitant]
  2. ALDARA [Concomitant]
  3. ZAZOLE [Concomitant]
  4. YAZ [Suspect]
     Indication: CONTRACEPTION
     Dates: start: 20020101, end: 20080615
  5. OCELLA [Suspect]
     Indication: CONTRACEPTION
     Dates: start: 20020101, end: 20080615
  6. MOTRIN [Concomitant]
  7. NEXIUM [Concomitant]
     Dates: start: 20020101
  8. AMOXICILLIN [Concomitant]
  9. TERCONAZOLE [Concomitant]
  10. DENAVIR [Concomitant]
  11. FLUCONAZOLE [Concomitant]
  12. LEVAQUIN [Concomitant]
  13. YASMIN [Suspect]
     Indication: CONTRACEPTION
     Dates: start: 20020101, end: 20080615
  14. PIROXICAM [Concomitant]
  15. CIPRO [Concomitant]
  16. HYDROCODONE [Concomitant]
  17. NEXIUM [Concomitant]
  18. OXYCODONE [Concomitant]

REACTIONS (4)
  - CHOLELITHIASIS [None]
  - BACK PAIN [None]
  - CHOLECYSTITIS CHRONIC [None]
  - ABDOMINAL PAIN [None]
